FAERS Safety Report 20064609 (Version 1)
Quarter: 2021Q4

REPORT INFORMATION
  Report Type: Other
  Country: None (occurrence: NG)
  Receive Date: 20211112
  Receipt Date: 20211112
  Transmission Date: 20220303
  Serious: Yes (Death)
  Sender: FDA-Public Use
  Company Number: NG-Jacobus Pharmaceutical Company, Inc.-2121809

PATIENT
  Age: 42 Year
  Sex: Male

DRUGS (7)
  1. PASER [Suspect]
     Active Substance: AMINOSALICYLIC ACID
     Indication: Tuberculosis
  2. LINEZOLID [Concomitant]
     Active Substance: LINEZOLID
  3. BEDAQUILINE [Concomitant]
     Active Substance: BEDAQUILINE
  4. PYRAZINAMIDE [Concomitant]
     Active Substance: PYRAZINAMIDE
  5. ISONIAZID [Concomitant]
     Active Substance: ISONIAZID
  6. CLOFAZIMINE [Concomitant]
     Active Substance: CLOFAZIMINE
  7. MOXIFLOXACIN [Concomitant]
     Active Substance: MOXIFLOXACIN

REACTIONS (3)
  - Neuropathy peripheral [Not Recovered/Not Resolved]
  - Anaemia [Recovered/Resolved]
  - Transfusion reaction [Fatal]
